FAERS Safety Report 7669706-5 (Version None)
Quarter: 2011Q3

REPORT INFORMATION
  Report Type: 
  Country: None (occurrence: None)
  Receive Date: 20110803
  Receipt Date: 20110726
  Transmission Date: 20111222
  Serious: Yes (Other)
  Sender: FDA-Public Use
  Company Number: OMPQ-NO-1107S-0733

PATIENT
  Age: 70 Year
  Sex: Female

DRUGS (1)
  1. OMNIPAQUE 70 [Suspect]
     Indication: PRODUCT USED FOR UNKNOWN INDICATION
     Dosage: SINGLE DOSE, INTRAVENOUS
     Route: 042
     Dates: start: 20110719, end: 20110719

REACTIONS (1)
  - EXTRAVASATION [None]
